FAERS Safety Report 5320059-7 (Version None)
Quarter: 2007Q2

REPORT INFORMATION
  Report Type: 
  Country: None (occurrence: None)
  Receive Date: 20070509
  Receipt Date: 20070504
  Transmission Date: 20071010
  Serious: Yes (Hospitalization)
  Sender: FDA-Public Use
  Company Number: DE-BAYER-200710512BVD

PATIENT
  Age: 73 Year
  Sex: Female
  Weight: 108 kg

DRUGS (3)
  1. NEXAVAR [Suspect]
     Indication: RENAL CELL CARCINOMA STAGE III
     Dosage: TOTAL DAILY DOSE: 800 MG
     Route: 048
     Dates: start: 20070129
  2. INTERFERON ALPHA [Concomitant]
     Route: 065
  3. PROLEUKIN [Concomitant]
     Route: 065

REACTIONS (7)
  - CONFUSIONAL STATE [None]
  - HEPATIC ENZYME INCREASED [None]
  - HYPOKALAEMIA [None]
  - HYPONATRAEMIA [None]
  - PYREXIA [None]
  - SWELLING FACE [None]
  - VOMITING [None]
